FAERS Safety Report 9700671 (Version 4)
Quarter: 2014Q1

REPORT INFORMATION
  Report Type: Spontaneous
  Country: US (occurrence: US)
  Receive Date: 20131121
  Receipt Date: 20140227
  Transmission Date: 20141002
  Serious: Yes (Other)
  Sender: FDA-Public Use
  Company Number: PHEH2013US024130

PATIENT
  Age: 90 Year
  Sex: Female

DRUGS (10)
  1. EXELON PATCH [Suspect]
     Dosage: 4.6 MG, DAILY
     Route: 062
  2. RANEXA [Concomitant]
     Dosage: UNK UKN, UNK
  3. ATENOLOL [Concomitant]
     Dosage: UNK UKN, UNK
  4. BABY ASPIRIN [Concomitant]
     Dosage: UNK UKN, UNK
  5. LOSARTAN [Concomitant]
     Dosage: UNK UKN, UNK
  6. LIPITOR [Concomitant]
     Dosage: UNK UKN, UNK
  7. COQ10 [Concomitant]
     Dosage: UNK UKN, UNK
  8. CALCIUM [Concomitant]
     Dosage: UNK UKN, UNK
  9. VITAMIN D [Concomitant]
     Dosage: UNK UKN, UNK
  10. PRESERVISION [Concomitant]
     Dosage: UNK UKN, UNK

REACTIONS (2)
  - Macular degeneration [Unknown]
  - Visual impairment [Unknown]
